FAERS Safety Report 5633722-5 (Version None)
Quarter: 2008Q1

REPORT INFORMATION
  Report Type: 
  Country: None (occurrence: None)
  Receive Date: 20080131
  Receipt Date: 20071011
  Transmission Date: 20080703
  Serious: No
  Sender: FDA-Public Use
  Company Number: 163-21880-07100684

PATIENT
  Sex: Female

DRUGS (1)
  1. REVLIMID [Suspect]
     Indication: MYELOFIBROSIS
     Dosage: 5 MG, DAILY FOR 21 DAYS AS DIRECTED, ORAL
     Route: 048
     Dates: start: 20061012

REACTIONS (4)
  - ALOPECIA [None]
  - DIARRHOEA [None]
  - PIGMENTATION DISORDER [None]
  - WEIGHT DECREASED [None]
